FAERS Safety Report 10643047 (Version 1)
Quarter: 2014Q4

REPORT INFORMATION
  Report Type: Spontaneous
  Country: US (occurrence: None)
  Receive Date: 20141209
  Receipt Date: 20141209
  Transmission Date: 20150529
  Serious: No
  Sender: FDA-Public Use
  Company Number: None

PATIENT
  Age: 79 Year
  Sex: Female
  Weight: 49.9 kg

DRUGS (1)
  1. IMBRUVICA [Suspect]
     Active Substance: IBRUTINIB
     Indication: CHRONIC LYMPHOCYTIC LEUKAEMIA
     Dosage: 3PILLS TAKEN TOGETHER ONCE DAILY
     Route: 048
     Dates: start: 20141114, end: 20141208

REACTIONS (4)
  - Nausea [None]
  - Skin swelling [None]
  - Pain [None]
  - Erythema [None]

NARRATIVE: CASE EVENT DATE: 20141201
